FAERS Safety Report 8333212-5 (Version None)
Quarter: 2012Q2

REPORT INFORMATION
  Report Type: 
  Country: None (occurrence: None)
  Receive Date: 20120503
  Receipt Date: 20120419
  Transmission Date: 20120825
  Serious: Yes (Other)
  Sender: FDA-Public Use
  Company Number: SE-PFIZER INC-2012106561

PATIENT
  Sex: Female

DRUGS (2)
  1. CORDARONE [Suspect]
     Indication: ATRIAL FIBRILLATION
     Dosage: UNK
     Dates: end: 20110905
  2. CORDARONE [Suspect]
     Indication: ATRIAL FLUTTER

REACTIONS (3)
  - CEREBELLAR INFARCTION [None]
  - HYPERTHYROIDISM [None]
  - VISUAL IMPAIRMENT [None]
